FAERS Safety Report 6855203-3 (Version None)
Quarter: 2010Q3

REPORT INFORMATION
  Report Type: 
  Country: None (occurrence: None)
  Receive Date: 20100718
  Receipt Date: 20100706
  Transmission Date: 20110219
  Serious: Yes (Death, Hospitalization)
  Sender: FDA-Public Use
  Company Number: BR-BRISTOL-MYERS SQUIBB COMPANY-15180565

PATIENT
  Age: 59 Year
  Sex: Male
  Weight: 164 kg

DRUGS (2)
  1. WARFARIN SODIUM [Suspect]
     Indication: ATRIAL FIBRILLATION
  2. ASPIRIN [Suspect]
     Dates: start: 20010401

REACTIONS (5)
  - CEREBRAL HAEMATOMA [None]
  - INTERNATIONAL NORMALISED RATIO INCREASED [None]
  - PNEUMONIA [None]
  - SEPTIC SHOCK [None]
  - SUBARACHNOID HAEMORRHAGE [None]
